FAERS Safety Report 17566043 (Version 1)
Quarter: 2020Q1

REPORT INFORMATION
  Report Type: Spontaneous
  Country: US (occurrence: US)
  Receive Date: 20200320
  Receipt Date: 20200320
  Transmission Date: 20200409
  Serious: Yes (Hospitalization)
  Sender: FDA-Public Use
  Company Number: None

PATIENT
  Age: 78 Year
  Sex: Male

DRUGS (4)
  1. LOSARTAN POT TAB 50 MG [Concomitant]
  2. ELIQUIS TAB 5 MG [Concomitant]
  3. REPATHA [Suspect]
     Active Substance: EVOLOCUMAB
     Indication: HYPERLIPIDAEMIA
     Dosage: ?          OTHER FREQUENCY:EVERY 14 DAYS;?
     Route: 058
     Dates: start: 20190531
  4. AMIODARONE TAB 200 MG [Concomitant]

REACTIONS (1)
  - Vascular graft [None]

NARRATIVE: CASE EVENT DATE: 20200207
